FAERS Safety Report 5135250-2 (Version None)
Quarter: 2006Q4

REPORT INFORMATION
  Report Type: 
  Country: None (occurrence: None)
  Receive Date: 20061026
  Receipt Date: 20060905
  Transmission Date: 20070319
  Serious: Yes (Disabling, Other)
  Sender: FDA-Public Use
  Company Number: GBWYE868406SEP06

PATIENT
  Sex: Male
  Weight: 106 kg

DRUGS (3)
  1. ENBREL [Suspect]
     Indication: PSORIASIS
     Route: 058
     Dates: start: 20060721, end: 20060809
  2. CYCLOSPORINE [Concomitant]
     Indication: PSORIASIS
     Route: 048
     Dates: end: 20060828
  3. METHOTREXATE SODIUM [Concomitant]
     Indication: PSORIASIS
     Route: 048
     Dates: end: 20060828

REACTIONS (14)
  - ABDOMINAL PAIN UPPER [None]
  - CEREBROVASCULAR ACCIDENT [None]
  - CONVULSION [None]
  - DIARRHOEA [None]
  - DIZZINESS [None]
  - DYSGEUSIA [None]
  - FLATULENCE [None]
  - HEADACHE [None]
  - HYPOAESTHESIA [None]
  - MOUTH ULCERATION [None]
  - MUSCULAR WEAKNESS [None]
  - PARAESTHESIA [None]
  - VISION BLURRED [None]
  - WEIGHT DECREASED [None]
